FAERS Safety Report 4729374-9 (Version None)
Quarter: 2005Q3

REPORT INFORMATION
  Report Type: 
  Country: None (occurrence: None)
  Receive Date: 20050729
  Receipt Date: 20050427
  Transmission Date: 20060218
  Serious: Yes (Hospitalization)
  Sender: FDA-Public Use
  Company Number: PHEH2005US04831

PATIENT
  Age: 2 Year
  Sex: Female

DRUGS (2)
  1. ZELNORM [Suspect]
     Indication: CONGENITAL MEGACOLON
     Dosage: 6 MG, QD
     Dates: start: 20040301
  2. ZELNORM [Suspect]
     Dosage: 2 MG, BID
     Route: 048
     Dates: start: 20040401

REACTIONS (7)
  - ABDOMINAL DISTENSION [None]
  - DEHYDRATION [None]
  - DIARRHOEA [None]
  - DRUG DISPENSING ERROR [None]
  - MEDICATION ERROR [None]
  - NAUSEA [None]
  - VOMITING [None]
